FAERS Safety Report 4269646-8 (Version None)
Quarter: 2004Q1

REPORT INFORMATION
  Report Type: 
  Country: None (occurrence: None)
  Receive Date: 20040112
  Receipt Date: 20040106
  Transmission Date: 20041129
  Serious: Yes (Hospitalization)
  Sender: FDA-Public Use
  Company Number: EMADSS2003002505

PATIENT
  Age: 55 Year
  Sex: Male
  Weight: 73 kg

DRUGS (3)
  1. REMICADE [Suspect]
     Indication: PSORIATIC ARTHROPATHY
     Dosage: 3 MG/KG, 1 IN 1 DAY, INTRAVENOUS
     Route: 042
     Dates: start: 20030107, end: 20030107
  2. DEPAKENE [Concomitant]
  3. ALEPSAL (ALEPSAL) [Concomitant]

REACTIONS (5)
  - DISEASE RECURRENCE [None]
  - EXTRAVASATION [None]
  - LUNG INFILTRATION [None]
  - PAIN [None]
  - PULMONARY TUBERCULOSIS [None]
